FAERS Safety Report 16206356 (Version 1)
Quarter: 2019Q2

REPORT INFORMATION
  Report Type: Other
  Country: JP (occurrence: JP)
  Receive Date: 20190417
  Receipt Date: 20190417
  Transmission Date: 20190711
  Serious: Yes (Disabling, Other)
  Sender: FDA-Public Use
  Company Number: JP-HORMOSAN PHARMA GMBH-2019-01063

PATIENT
  Age: 35 Year
  Sex: Female

DRUGS (1)
  1. QUETIAPINE 100 MG TABLETS [Suspect]
     Active Substance: QUETIAPINE
     Indication: PRODUCT USED FOR UNKNOWN INDICATION
     Dosage: UNK
     Route: 065
     Dates: start: 201406, end: 201407

REACTIONS (3)
  - Opisthotonus [Unknown]
  - Dystonia [Unknown]
  - Eyelid disorder [Unknown]
